FAERS Safety Report 10584125 (Version 1)
Quarter: 2014Q4

REPORT INFORMATION
  Report Type: Spontaneous
  Country: US (occurrence: None)
  Receive Date: 20141113
  Receipt Date: 20141113
  Transmission Date: 20150529
  Serious: Yes (Other)
  Sender: FDA-Public Use
  Company Number: None

PATIENT
  Age: 66 Year
  Sex: Female
  Weight: 68.04 kg

DRUGS (16)
  1. LOSARTAN [Concomitant]
     Active Substance: LOSARTAN
  2. LEVOCETIRIZINE [Concomitant]
     Active Substance: LEVOCETIRIZINE
  3. FENOBRATE [Concomitant]
  4. LEVOCETIRIZINE [Concomitant]
     Active Substance: LEVOCETIRIZINE
  5. CALCIUM [Concomitant]
     Active Substance: CALCIUM
  6. LOSARTAN [Concomitant]
     Active Substance: LOSARTAN
  7. BENEFIBEN [Concomitant]
  8. GLIMEPIRIDE. [Concomitant]
     Active Substance: GLIMEPIRIDE
  9. VYTORIN [Concomitant]
     Active Substance: EZETIMIBE\SIMVASTATIN
  10. VYTORIN [Concomitant]
     Active Substance: EZETIMIBE\SIMVASTATIN
  11. GLIMEPINIDE [Concomitant]
  12. SUPREP BOWEL PREP [Suspect]
     Active Substance: MAGNESIUM SULFATE\POTASSIUM SULFATE\SODIUM SULFATE
     Indication: COLONOSCOPY
     Dosage: I DRINK 2 BOTTLES, 1 IN THE MORN 1 IN THE EVEN. ?I DRUNK IT BY MOUTH
     Route: 048
     Dates: start: 20141028
  13. TRICOR [Concomitant]
     Active Substance: FENOFIBRATE
  14. NASONEX [Concomitant]
     Active Substance: MOMETASONE FUROATE
  15. B-COMPLEX VITAMIN [Concomitant]
  16. NASONEX [Concomitant]
     Active Substance: MOMETASONE FUROATE

REACTIONS (2)
  - Migraine [None]
  - Abdominal discomfort [None]

NARRATIVE: CASE EVENT DATE: 20141029
